FAERS Safety Report 5145996-8 (Version None)
Quarter: 2006Q4

REPORT INFORMATION
  Report Type: 
  Country: None (occurrence: None)
  Receive Date: 20061108
  Receipt Date: 20060810
  Transmission Date: 20070319
  Serious: Yes (Hospitalization, Disabling)
  Sender: FDA-Public Use
  Company Number: AUWYE640410AUG06

PATIENT
  Sex: Female
  Weight: 95 kg

DRUGS (1)
  1. ENBREL [Suspect]
     Indication: ANKYLOSING SPONDYLITIS
     Route: 058
     Dates: start: 20050906, end: 20060711

REACTIONS (1)
  - LEUKOENCEPHALOMYELITIS [None]
